FAERS Safety Report 16806629 (Version 2)
Quarter: 2019Q4

REPORT INFORMATION
  Report Type: Spontaneous
  Country: US (occurrence: US)
  Receive Date: 20190913
  Receipt Date: 20191108
  Transmission Date: 20200122
  Serious: No
  Sender: FDA-Public Use
  Company Number: US-SA-2019SA254567

PATIENT
  Age: 66 Year
  Sex: Female

DRUGS (7)
  1. GABAPENTIN. [Concomitant]
     Active Substance: GABAPENTIN
  2. ELIQUIS [Concomitant]
     Active Substance: APIXABAN
  3. PRALUENT [Suspect]
     Active Substance: ALIROCUMAB
     Indication: HYPERLIPIDAEMIA
     Dosage: 150 MG, QOW
     Route: 058
     Dates: start: 20190621
  4. BACLOFEN. [Concomitant]
     Active Substance: BACLOFEN
  5. VITAMIN E NOS [Concomitant]
     Active Substance: .ALPHA.-TOCOPHEROL
  6. METOPROLOL SUCCINATE. [Concomitant]
     Active Substance: METOPROLOL SUCCINATE
  7. TRAMADOL HCL [Concomitant]
     Active Substance: TRAMADOL HYDROCHLORIDE

REACTIONS (4)
  - Injection site erythema [Unknown]
  - Pain in extremity [Unknown]
  - Pruritus [Unknown]
  - Injection site swelling [Unknown]

NARRATIVE: CASE EVENT DATE: 2019
